FAERS Safety Report 10012721 (Version 3)
Quarter: 2014Q1

REPORT INFORMATION
  Report Type: Report from Study
  Country: US (occurrence: US)
  Receive Date: 20140314
  Receipt Date: 20140324
  Transmission Date: 20141002
  Serious: Yes (Hospitalization)
  Sender: FDA-Public Use
  Company Number: US-VERTEX PHARMACEUTICALS INC-2014-000520

PATIENT
  Age: 79 Year
  Sex: Female
  Weight: 84.1 kg

DRUGS (17)
  1. TELAPREVIR [Suspect]
     Indication: HEPATITIS C
     Dosage: 750 MG, UNK
     Route: 048
     Dates: start: 20140103, end: 20140131
  2. SOFOSBUVIR [Suspect]
     Indication: HEPATITIS C
     Dosage: 400 MG, UNK
     Route: 048
     Dates: start: 20140130, end: 20140318
  3. POTASSIUM [Suspect]
     Dosage: UNKNOWN DOSE, TWO TIMES
     Route: 048
  4. CELEBREX [Concomitant]
     Indication: ARTHRALGIA
     Dosage: 200 MG, UNK
     Dates: start: 2003
  5. PRILOSEC [Concomitant]
     Indication: GASTROOESOPHAGEAL REFLUX DISEASE
     Dosage: 40 MG, UNK
     Dates: start: 2003
  6. CALCIUM [Concomitant]
     Indication: OSTEOPENIA
     Dosage: 2 DF, UNK
     Dates: start: 2003
  7. VITAMIN B 12 [Concomitant]
     Indication: NUTRITIONAL SUPPLEMENTATION
     Dosage: 1 DF, UNK
     Dates: start: 2012
  8. FLEXERIL [Concomitant]
     Indication: ARTHRALGIA
     Dosage: 10 MG, UNK
     Dates: start: 2003
  9. LEVOTHYROXINE [Concomitant]
     Indication: HYPOTHYROIDISM
     Dosage: 75 ?G, UNK
     Dates: start: 201306
  10. LISINOPRIL [Concomitant]
     Indication: HYPERTENSION
     Dosage: 40 MG, UNK
     Dates: start: 2012
  11. ATIVAN [Concomitant]
     Indication: ANXIETY
     Dosage: 0.25 MG, QHS PRN
     Route: 048
     Dates: start: 2012, end: 20140130
  12. EFFEXOR [Concomitant]
     Indication: DEPRESSION
     Dosage: 150 MG, QD
     Route: 048
     Dates: start: 2003
  13. AMBIEN [Concomitant]
     Indication: INSOMNIA
     Dosage: 5 MG, QHS PRN
     Dates: start: 201306, end: 20140130
  14. VITAMIN D [Concomitant]
     Indication: NUTRITIONAL SUPPLEMENTATION
     Dosage: 1 DF, QD
     Route: 048
     Dates: start: 2001, end: 20140130
  15. AMLODIPINE [Concomitant]
     Indication: HYPERTENSION
     Dosage: 5 MG, QD
     Route: 048
     Dates: start: 2012
  16. PANTOPRAZOLE [Concomitant]
     Indication: PROPHYLAXIS
     Dosage: 40 MG, QD
     Route: 041
     Dates: start: 20140130, end: 20140130
  17. PANTOPRAZOLE [Concomitant]
     Indication: GASTROOESOPHAGEAL REFLUX DISEASE
     Dosage: 40 MG, QD
     Route: 048
     Dates: start: 20140206

REACTIONS (2)
  - Bradycardia [Recovered/Resolved]
  - Hyperkalaemia [Recovered/Resolved]
